FAERS Safety Report 12376313 (Version 1)
Quarter: 2016Q2

REPORT INFORMATION
  Report Type: Spontaneous
  Country: US (occurrence: US)
  Receive Date: 20160517
  Receipt Date: 20160517
  Transmission Date: 20160815
  Serious: No
  Sender: FDA-Public Use
  Company Number: US-PFIZER INC-2016246203

PATIENT
  Sex: Female

DRUGS (1)
  1. SONATA [Suspect]
     Active Substance: ZALEPLON
     Indication: INSOMNIA
     Dosage: UNK

REACTIONS (1)
  - Drug ineffective [Unknown]
